FAERS Safety Report 7069864-X (Version None)
Quarter: 2010Q4

REPORT INFORMATION
  Report Type: 
  Country: None (occurrence: None)
  Receive Date: 20101028
  Receipt Date: 20100621
  Transmission Date: 20110411
  Serious: No
  Sender: FDA-Public Use
  Company Number: US-WYE-H15802310

PATIENT
  Sex: Female
  Weight: 88.53 kg

DRUGS (16)
  1. EFFEXOR [Suspect]
     Indication: DEPRESSION
     Route: 048
     Dates: start: 20100317, end: 20100501
  2. EFFEXOR [Suspect]
     Indication: ANXIETY
     Route: 048
     Dates: start: 20100501, end: 20100501
  3. EFFEXOR [Suspect]
     Dosage: TAPERED OFF
     Route: 048
     Dates: start: 20100501
  4. ARIMIDEX [Concomitant]
  5. PRISTIQ [Suspect]
     Indication: DEPRESSION
     Route: 048
     Dates: start: 20100601, end: 20100601
  6. PRISTIQ [Suspect]
     Indication: ANXIETY
  7. OMEPRAZOLE [Concomitant]
  8. CITRUCEL [Concomitant]
  9. SIMVASTATIN [Concomitant]
  10. ASMANEX TWISTHALER [Concomitant]
  11. ERGOCALCIFEROL [Concomitant]
  12. MULTI-VITAMINS [Concomitant]
  13. FISH OIL [Concomitant]
  14. CYMBALTA [Suspect]
     Indication: DEPRESSION
     Dosage: UNKNOWN
     Dates: start: 20100501, end: 20100101
  15. CYMBALTA [Suspect]
     Indication: ANXIETY
  16. SYNTHROID [Concomitant]

REACTIONS (4)
  - DRUG WITHDRAWAL SYNDROME [None]
  - HEADACHE [None]
  - NAUSEA [None]
  - TREMOR [None]
